FAERS Safety Report 21432605 (Version 1)
Quarter: 2022Q4

REPORT INFORMATION
  Report Type: Report from Study
  Country: US (occurrence: US)
  Receive Date: 20221010
  Receipt Date: 20221010
  Transmission Date: 20230113
  Serious: Yes (Other)
  Sender: FDA-Public Use
  Company Number: US-ABBVIE-4144311

PATIENT
  Sex: Female

DRUGS (15)
  1. RINVOQ [Suspect]
     Active Substance: UPADACITINIB
     Indication: Rheumatoid arthritis
     Route: 048
     Dates: start: 202209, end: 2022
  2. FLUCELVAX QUAD 2022-2023 [Concomitant]
     Indication: Product used for unknown indication
  3. MODERNA COVID-19 VACCINE [Concomitant]
     Active Substance: ELASOMERAN
     Indication: COVID-19 immunisation
     Dosage: 1 IN 1 ONCE
     Route: 030
  4. MODERNA COVID-19 VACCINE [Concomitant]
     Active Substance: ELASOMERAN
     Indication: COVID-19 immunisation
     Dosage: 1 IN 1 ONCE
     Route: 030
  5. MODERNA COVID-19 VACCINE [Concomitant]
     Active Substance: ELASOMERAN
     Indication: COVID-19 immunisation
     Dosage: 1 IN 1 ONCE (BOOSTER DOSE)
     Route: 030
  6. VIitamin D3 125 MCG CAPSULE [Concomitant]
     Indication: Product used for unknown indication
     Dosage: 125 MCG
  7. Potassium 595(99)MG Tablet [Concomitant]
     Indication: Product used for unknown indication
  8. ALENDRONATE SODIUM [Concomitant]
     Active Substance: ALENDRONATE SODIUM
     Indication: Product used for unknown indication
     Dosage: 70 MG
  9. Turmeric 536 mg capsules [Concomitant]
     Indication: Product used for unknown indication
     Dosage: 536 MG
  10. Lumify 0.025 % drops [Concomitant]
     Indication: Product used for unknown indication
  11. Probiotic 250 mg capsule [Concomitant]
     Indication: Product used for unknown indication
     Dosage: 250 MG
  12. Fish oil 1000mg capsules [Concomitant]
     Indication: Product used for unknown indication
     Dosage: 10000 MG
  13. Alpha lipoic acid 600 mg capsule [Concomitant]
     Indication: Product used for unknown indication
     Dosage: 600 MG
  14. methotrexate 25 mg/ml vial [Concomitant]
     Indication: Product used for unknown indication
  15. Milk thistle 175 mg capsules [Concomitant]
     Indication: Product used for unknown indication
     Dosage: 175 MG

REACTIONS (1)
  - Medical device removal [Unknown]

NARRATIVE: CASE EVENT DATE: 20220101
